FAERS Safety Report 8311882-5 (Version None)
Quarter: 2012Q2

REPORT INFORMATION
  Report Type: 
  Country: None (occurrence: None)
  Receive Date: 20120425
  Receipt Date: 20120416
  Transmission Date: 20120825
  Serious: Yes (Hospitalization)
  Sender: FDA-Public Use
  Company Number: DE-ACTELION-A-CH2010-42283

PATIENT
  Sex: Male
  Weight: 17.6 kg

DRUGS (4)
  1. MOVIPREP [Concomitant]
  2. KEPPRA [Concomitant]
  3. ZAVESCA [Suspect]
     Indication: NIEMANN-PICK DISEASE
     Dosage: 50 MG, TID
     Route: 048
     Dates: end: 20110108
  4. LAMOTRIGINE [Concomitant]

REACTIONS (3)
  - GENERAL PHYSICAL HEALTH DETERIORATION [None]
  - DIARRHOEA [None]
  - THROMBOCYTOPENIA [None]
